FAERS Safety Report 8342541-0 (Version None)
Quarter: 2012Q2

REPORT INFORMATION
  Report Type: 
  Country: None (occurrence: None)
  Receive Date: 20120508
  Receipt Date: 20120427
  Transmission Date: 20120825
  Serious: No
  Sender: FDA-Public Use
  Company Number: US-BIOGENIDEC-2012BI015085

PATIENT
  Sex: Female

DRUGS (1)
  1. TYSABRI [Suspect]
     Indication: MULTIPLE SCLEROSIS
     Route: 042
     Dates: start: 20071210

REACTIONS (11)
  - MULTIPLE SCLEROSIS RELAPSE [None]
  - FALL [None]
  - CONTUSION [None]
  - DYSPHAGIA [None]
  - BODY TEMPERATURE INCREASED [None]
  - WEIGHT DECREASED [None]
  - MENTAL IMPAIRMENT [None]
  - BALANCE DISORDER [None]
  - HEADACHE [None]
  - ASTHENIA [None]
  - JOINT SWELLING [None]
